FAERS Safety Report 9419908 (Version 1)
Quarter: 2013Q3

REPORT INFORMATION
  Report Type: Spontaneous
  Country: US (occurrence: None)
  Receive Date: 20130723
  Receipt Date: 20130723
  Transmission Date: 20140515
  Serious: Yes (Other)
  Sender: FDA-Public Use
  Company Number: None

PATIENT
  Age: 56 Year
  Sex: Male
  Weight: 83.92 kg

DRUGS (1)
  1. CIPROFLOXACIN [Suspect]
     Route: 048
     Dates: start: 20130703, end: 20130714

REACTIONS (6)
  - Asthenia [None]
  - Hypersomnia [None]
  - Dysphemia [None]
  - Musculoskeletal stiffness [None]
  - Movement disorder [None]
  - Thinking abnormal [None]
